FAERS Safety Report 8133488-3 (Version None)
Quarter: 2012Q1

REPORT INFORMATION
  Report Type: 
  Country: None (occurrence: None)
  Receive Date: 20120213
  Receipt Date: 20120203
  Transmission Date: 20120608
  Serious: Yes (Other)
  Sender: FDA-Public Use
  Company Number: DE-VERTEX PHARMACEUTICALS INC.-000000000000000183

PATIENT
  Sex: Male

DRUGS (2)
  1. ANTIVIRALS [Concomitant]
     Dosage: DOSAGE FORM: UNSPECIFIED
     Route: 065
  2. INCIVO (TELAPREVIR) [Suspect]
     Indication: PRODUCT USED FOR UNKNOWN INDICATION
     Dosage: DOSAGE FORM: TABLET
     Route: 048
     Dates: start: 20110101

REACTIONS (2)
  - DEPRESSION [None]
  - VISUAL IMPAIRMENT [None]
